FAERS Safety Report 5190449-4 (Version None)
Quarter: 2006Q4

REPORT INFORMATION
  Report Type: 
  Country: None (occurrence: None)
  Receive Date: 20061222
  Receipt Date: 20061213
  Transmission Date: 20070319
  Serious: Yes (Hospitalization)
  Sender: FDA-Public Use
  Company Number: SE-ELI_LILLY_AND_COMPANY-SE200612002721

PATIENT
  Age: 17 Year
  Sex: Female

DRUGS (4)
  1. ZYPREXA [Suspect]
     Indication: AFFECTIVE DISORDER
     Dosage: 2.5 MG, DAILY (1/D)
     Dates: start: 20061119
  2. ZOLOFT [Concomitant]
     Indication: DEPRESSION
     Dosage: 25 MG, DAILY (1/D)
     Dates: end: 20061122
  3. ZOLOFT [Concomitant]
     Dosage: 50 MG, DAILY (1/D)
     Dates: end: 20061101
  4. ATARAX [Concomitant]
     Dosage: 10 MG, DAILY (1/D)
     Dates: end: 20061119

REACTIONS (4)
  - ANAEMIA [None]
  - DEHYDRATION [None]
  - DEPRESSED MOOD [None]
  - GENERAL PHYSICAL HEALTH DETERIORATION [None]
